FAERS Safety Report 5033329-7 (Version None)
Quarter: 2006Q2

REPORT INFORMATION
  Report Type: 
  Country: None (occurrence: None)
  Receive Date: 20060620
  Receipt Date: 20060608
  Transmission Date: 20061013
  Serious: Yes (Death, Hospitalization)
  Sender: FDA-Public Use
  Company Number: JP200605005321

PATIENT
  Age: 69 Year
  Sex: Female

DRUGS (2)
  1. ZYPREXA [Suspect]
     Indication: RESTLESSNESS
     Dosage: SEE IMAGE
     Route: 048
     Dates: start: 20040715, end: 20051001
  2. ZYPREXA [Suspect]
     Indication: RESTLESSNESS
     Dosage: SEE IMAGE
     Route: 048
     Dates: start: 20051101, end: 20060525

REACTIONS (9)
  - BACTERIA URINE [None]
  - BLOOD PRESSURE INADEQUATELY CONTROLLED [None]
  - CEREBRAL HAEMORRHAGE [None]
  - GENERAL PHYSICAL HEALTH DETERIORATION [None]
  - GLYCOSYLATED HAEMOGLOBIN INCREASED [None]
  - HYPERGLYCAEMIA [None]
  - INFECTION [None]
  - PYREXIA [None]
  - RENAL FAILURE ACUTE [None]
